FAERS Safety Report 9189763 (Version 1)
Quarter: 2013Q1

REPORT INFORMATION
  Report Type: Spontaneous
  Country: US (occurrence: None)
  Receive Date: 20130322
  Receipt Date: 20130322
  Transmission Date: 20140127
  Serious: Yes (Hospitalization, Other)
  Sender: FDA-Public Use
  Company Number: None

PATIENT
  Age: 52 Year
  Sex: Female
  Weight: 71.67 kg

DRUGS (1)
  1. MINIVELLE [Suspect]
     Indication: HYSTERECTOMY
     Route: 008
     Dates: start: 20130117, end: 20130316

REACTIONS (1)
  - Transient ischaemic attack [None]
